FAERS Safety Report 14431625 (Version 1)
Quarter: 2018Q1

REPORT INFORMATION
  Report Type: Spontaneous
  Country: US (occurrence: US)
  Receive Date: 20180124
  Receipt Date: 20180124
  Transmission Date: 20180509
  Serious: Yes (Hospitalization, Other)
  Sender: FDA-Public Use
  Company Number: US-ROCHE-2020969

PATIENT
  Age: 17 Year
  Sex: Female

DRUGS (15)
  1. ACTEMRA [Suspect]
     Active Substance: TOCILIZUMAB
     Indication: CYTOKINE RELEASE SYNDROME
     Dosage: DOSAGE IS UNCERTAIN.
     Route: 065
     Dates: start: 20160515
  2. POSACONAZOLE [Concomitant]
     Active Substance: POSACONAZOLE
  3. ISAVUCONAZONIUM [Concomitant]
     Active Substance: ISAVUCONAZONIUM
     Indication: ANTIFUNGAL PROPHYLAXIS
  4. FILGRASTIM [Concomitant]
     Active Substance: FILGRASTIM
     Indication: WHITE BLOOD CELL COUNT DECREASED
     Route: 065
  5. TISAGENLECLEUCEL. [Suspect]
     Active Substance: TISAGENLECLEUCEL
     Indication: PRODUCT USED FOR UNKNOWN INDICATION
     Dosage: DOSAGE IS UNCERTAIN.
     Route: 041
  6. CELECOXIB. [Concomitant]
     Active Substance: CELECOXIB
  7. DEXMEDETOMIDINE. [Concomitant]
     Active Substance: DEXMEDETOMIDINE
  8. FENTANYL. [Concomitant]
     Active Substance: FENTANYL
  9. MEROPENEM. [Concomitant]
     Active Substance: MEROPENEM
  10. BUMETANIDE. [Concomitant]
     Active Substance: BUMETANIDE
  11. MIDAZOLAM [Concomitant]
     Active Substance: MIDAZOLAM HYDROCHLORIDE
  12. FUROSEMIDE. [Concomitant]
     Active Substance: FUROSEMIDE
  13. KETAMINE [Concomitant]
     Active Substance: KETAMINE
  14. GRANISETRON [Concomitant]
     Active Substance: GRANISETRON
     Route: 065
  15. VALACYCLOVIR HYDROCHLORIDE. [Concomitant]
     Active Substance: VALACYCLOVIR HYDROCHLORIDE

REACTIONS (5)
  - Haemarthrosis [Recovered/Resolved]
  - Febrile neutropenia [Recovered/Resolved]
  - Left ventricular dysfunction [Recovered/Resolved]
  - Troponin increased [Recovered/Resolved]
  - Sinus bradycardia [Recovered/Resolved]

NARRATIVE: CASE EVENT DATE: 20160516
